FAERS Safety Report 13162396 (Version 1)
Quarter: 2017Q1

REPORT INFORMATION
  Report Type: Spontaneous
  Country: US (occurrence: US)
  Receive Date: 20170127
  Receipt Date: 20170127
  Transmission Date: 20170428
  Serious: Yes (Other)
  Sender: FDA-Public Use
  Company Number: None

PATIENT
  Age: 46 Year
  Sex: Male
  Weight: 121.5 kg

DRUGS (6)
  1. ASPIRIN. [Concomitant]
     Active Substance: ASPIRIN
  2. ZOCOR [Concomitant]
     Active Substance: SIMVASTATIN
  3. AMLODIPINE [Suspect]
     Active Substance: AMLODIPINE BESYLATE
     Indication: HYPERTENSION
     Route: 048
     Dates: start: 20161107, end: 20170119
  4. RED YEAST RICE SUPPLEMENT [Concomitant]
  5. TURMERIC SUPPLEMENT [Concomitant]
  6. CLARITIN [Concomitant]
     Active Substance: LORATADINE

REACTIONS (3)
  - Therapy change [None]
  - Therapy cessation [None]
  - Angioedema [None]

NARRATIVE: CASE EVENT DATE: 20170119
